FAERS Safety Report 5480511-0 (Version None)
Quarter: 2007Q4

REPORT INFORMATION
  Report Type: 
  Country: None (occurrence: None)
  Receive Date: 20071004
  Receipt Date: 20071004
  Transmission Date: 20080405
  Serious: Yes (Hospitalization)
  Sender: FDA-Public Use
  Company Number: None

PATIENT
  Sex: Female
  Weight: 129.2752 kg

DRUGS (1)
  1. ALKA-SELTZER UNKNOWN UNKNOWN [Suspect]
     Indication: STOMACH DISCOMFORT
     Dosage: 1-2 TABS QID PO 1-4 DAYS APPROXIMATELY
     Route: 048

REACTIONS (4)
  - ASTHENIA [None]
  - DIVERTICULUM [None]
  - LOSS OF CONSCIOUSNESS [None]
  - RECTAL HAEMORRHAGE [None]
